FAERS Safety Report 22325643 (Version 1)
Quarter: 2023Q2

REPORT INFORMATION
  Report Type: Spontaneous
  Country: CH (occurrence: CH)
  Receive Date: 20230516
  Receipt Date: 20230516
  Transmission Date: 20230721
  Serious: Yes (Death, Other)
  Sender: FDA-Public Use
  Company Number: CH-AMGEN-CHESP2023080055

PATIENT

DRUGS (1)
  1. PEGFILGRASTIM [Suspect]
     Active Substance: PEGFILGRASTIM
     Indication: Prophylaxis
     Dosage: UNK
     Route: 065

REACTIONS (17)
  - Death [Fatal]
  - Disseminated intravascular coagulation [Recovered/Resolved]
  - Cytokine release syndrome [Unknown]
  - Immune effector cell-associated neurotoxicity syndrome [Unknown]
  - Febrile neutropenia [Unknown]
  - Infection [Unknown]
  - Haematotoxicity [Unknown]
  - Anaemia [Unknown]
  - Neutropenia [Unknown]
  - Blood stem cell harvest failure [Unknown]
  - Plasma cell myeloma refractory [Unknown]
  - Alanine aminotransferase [Unknown]
  - Aspartate aminotransferase [Unknown]
  - General physical health deterioration [Unknown]
  - Colitis [Recovered/Resolved]
  - Thrombocytopenia [Unknown]
  - Pancytopenia [Unknown]
